FAERS Safety Report 4480522-8 (Version None)
Quarter: 2004Q4

REPORT INFORMATION
  Report Type: 
  Country: None (occurrence: None)
  Receive Date: 20041019
  Receipt Date: 20041011
  Transmission Date: 20050328
  Serious: Yes (Death, Hospitalization, Other)
  Sender: FDA-Public Use
  Company Number: SHC-2002-006366

PATIENT
  Age: 62 Year
  Sex: Female
  Weight: 83 kg

DRUGS (1)
  1. E2/LNG PATHCES, OPEN (E2/LNG PATCHES, OPEN) PATCH [Suspect]
     Indication: HORMONE REPLACEMENT THERAPY
     Dosage: 30MCG E2/18 MCG LNG, TRANSDERMAL
     Route: 062
     Dates: start: 20000710, end: 20020726

REACTIONS (15)
  - B-CELL LYMPHOMA [None]
  - BREAST CANCER [None]
  - CENTRAL NERVOUS SYSTEM LYMPHOMA [None]
  - CEREBROVASCULAR ACCIDENT [None]
  - CHOLELITHIASIS [None]
  - CORONARY ARTERY ATHEROSCLEROSIS [None]
  - HEPATIC STEATOSIS [None]
  - IMMUNOSUPPRESSION [None]
  - MYOCARDIAL FIBROSIS [None]
  - PARANEOPLASTIC SYNDROME [None]
  - PNEUMONIA ASPIRATION [None]
  - PROGRESSIVE MULTIFOCAL LEUKOENCEPHALOPATHY [None]
  - PULMONARY OEDEMA [None]
  - RENAL TUBULAR NECROSIS [None]
  - SPLEEN CONGESTION [None]
